FAERS Safety Report 25669555 (Version 1)
Quarter: 2025Q3

REPORT INFORMATION
  Report Type: Spontaneous
  Country: TR (occurrence: TR)
  Receive Date: 20250812
  Receipt Date: 20250812
  Transmission Date: 20251021
  Serious: Yes (Hospitalization)
  Sender: Norvium Bioscience
  Company Number: TR-Norvium Bioscience LLC-080488

PATIENT
  Age: 73 Year
  Sex: Male

DRUGS (3)
  1. SERTRALINE HYDROCHLORIDE [Interacting]
     Active Substance: SERTRALINE HYDROCHLORIDE
     Indication: Abnormal behaviour
  2. RISPERIDONE [Interacting]
     Active Substance: RISPERIDONE
     Indication: Abnormal behaviour
  3. ASPIRIN [Concomitant]
     Active Substance: ASPIRIN
     Indication: Cerebrovascular disorder

REACTIONS (2)
  - Myoclonus [Recovered/Resolved]
  - Drug interaction [Unknown]
